FAERS Safety Report 7513029-1 (Version None)
Quarter: 2011Q2

REPORT INFORMATION
  Report Type: 
  Country: None (occurrence: None)
  Receive Date: 20110531
  Receipt Date: 20110520
  Transmission Date: 20111010
  Serious: Yes (Hospitalization)
  Sender: FDA-Public Use
  Company Number: BG-ASTRAZENECA-2011SE23231

PATIENT
  Age: 61 Year
  Sex: Female

DRUGS (2)
  1. IRESSA [Suspect]
     Indication: NON-SMALL CELL LUNG CANCER
     Route: 048
     Dates: start: 20100217
  2. TARCEVA [Concomitant]

REACTIONS (3)
  - COUGH [None]
  - PLEURAL EFFUSION [None]
  - DYSPNOEA [None]
